FAERS Safety Report 11286472 (Version 1)
Quarter: 2015Q3

REPORT INFORMATION
  Report Type: Spontaneous
  Country: US (occurrence: US)
  Receive Date: 20150721
  Receipt Date: 20150721
  Transmission Date: 20151125
  Serious: No
  Sender: FDA-Public Use
  Company Number: US-UNITED THERAPEUTICS-UNT-2015-005606

PATIENT
  Sex: Female
  Weight: 77.98 kg

DRUGS (5)
  1. ADCIRCA [Concomitant]
     Active Substance: TADALAFIL
     Indication: PRODUCT USED FOR UNKNOWN INDICATION
  2. ORENITRAM [Suspect]
     Active Substance: TREPROSTINIL
     Indication: PULMONARY HYPERTENSION
     Dosage: 10 MG, TID
     Route: 048
     Dates: start: 20150212
  3. ORENITRAM [Suspect]
     Active Substance: TREPROSTINIL
     Dosage: 10 MICROGRAMS, TID
     Route: 048
     Dates: start: 20150212
  4. TRACLEER [Concomitant]
     Active Substance: BOSENTAN
     Indication: PRODUCT USED FOR UNKNOWN INDICATION
  5. ORENITRAM [Suspect]
     Active Substance: TREPROSTINIL
     Dosage: 10 MICROGRAMS, TID
     Route: 048
     Dates: start: 20150212

REACTIONS (7)
  - Palpitations [Not Recovered/Not Resolved]
  - Treatment noncompliance [Unknown]
  - Hot flush [Not Recovered/Not Resolved]
  - Disturbance in attention [Not Recovered/Not Resolved]
  - Dizziness [Not Recovered/Not Resolved]
  - Malaise [Unknown]
  - Incorrect dosage administered [Unknown]
